FAERS Safety Report 7405870-0 (Version None)
Quarter: 2011Q2

REPORT INFORMATION
  Report Type: 
  Country: None (occurrence: None)
  Receive Date: 20110406
  Receipt Date: 20110406
  Transmission Date: 20111010
  Serious: No
  Sender: FDA-Public Use
  Company Number: None

PATIENT
  Age: 57 Year
  Sex: Male

DRUGS (2)
  1. LEVAQUIN [Suspect]
     Dates: start: 20091228, end: 20100108
  2. AUGMENTIN [Suspect]
     Dates: start: 20091206, end: 20091215

REACTIONS (7)
  - DECREASED APPETITE [None]
  - PRURITUS [None]
  - CHOLESTASIS [None]
  - JAUNDICE [None]
  - HEPATOMEGALY [None]
  - LIVER INJURY [None]
  - NAUSEA [None]
